FAERS Safety Report 10028416 (Version 16)
Quarter: 2015Q3

REPORT INFORMATION
  Report Type: Spontaneous
  Country: US (occurrence: None)
  Receive Date: 20140307
  Receipt Date: 20150903
  Transmission Date: 20151125
  Serious: Yes (Hospitalization, Other)
  Sender: FDA-Public Use
  Company Number: DSU-2014-00432

PATIENT
  Age: 54 Year
  Sex: Female
  Weight: 62.6 kg

DRUGS (5)
  1. BENICAR HCT [Suspect]
     Active Substance: HYDROCHLOROTHIAZIDE\OLMESARTAN MEDOXOMIL
     Indication: PRODUCT USED FOR UNKNOWN INDICATION
     Dosage: 20/12.5MG
     Route: 048
     Dates: end: 201308
  2. BENICAR [Suspect]
     Active Substance: OLMESARTAN MEDOXOMIL
     Indication: HYPERTENSION
     Route: 048
     Dates: end: 201308
  3. NORVASC [Concomitant]
     Active Substance: AMLODIPINE BESYLATE
  4. FOSAMAX [Concomitant]
     Active Substance: ALENDRONATE SODIUM
  5. DEXILANT [Concomitant]
     Active Substance: DEXLANSOPRAZOLE

REACTIONS (52)
  - Malabsorption [None]
  - Malnutrition [None]
  - Hiatus hernia [None]
  - Palpitations [None]
  - Malaise [None]
  - Red cell distribution width increased [None]
  - Weight decreased [None]
  - Hepatic steatosis [None]
  - Abdominal pain [None]
  - Hyperlipidaemia [None]
  - Cold sweat [None]
  - Feeling cold [None]
  - Nausea [None]
  - Vertebral foraminal stenosis [None]
  - Alanine aminotransferase increased [None]
  - Blood glucose increased [None]
  - Uterine leiomyoma [None]
  - Blood potassium decreased [None]
  - Diverticulum intestinal [None]
  - Acquired oesophageal web [None]
  - Lumbar radiculopathy [None]
  - Intervertebral disc protrusion [None]
  - Wheezing [None]
  - Coeliac disease [None]
  - Blood pressure systolic increased [None]
  - Ureteric stenosis [None]
  - Asthenia [None]
  - Carotid arteriosclerosis [None]
  - Osteoporosis [None]
  - Gastroenteritis [None]
  - Chest pain [None]
  - Blood calcium increased [None]
  - Spinal cord compression [None]
  - Drug ineffective [None]
  - Dysphagia [None]
  - Obesity [None]
  - Back pain [None]
  - Joint swelling [None]
  - Muscle strain [None]
  - Extrarenal pelvis [None]
  - Left atrial dilatation [None]
  - Blood phosphorus decreased [None]
  - Syncope [None]
  - Colitis microscopic [None]
  - Dehydration [None]
  - Aspartate aminotransferase increased [None]
  - Mean cell haemoglobin increased [None]
  - Blood creatine phosphokinase increased [None]
  - Scoliosis [None]
  - International normalised ratio increased [None]
  - Rash generalised [None]
  - Presyncope [None]

NARRATIVE: CASE EVENT DATE: 20020826
